FAERS Safety Report 6934982-0 (Version None)
Quarter: 2010Q3

REPORT INFORMATION
  Report Type: 
  Country: None (occurrence: None)
  Receive Date: 20100822
  Receipt Date: 20100809
  Transmission Date: 20110219
  Serious: Yes (Other)
  Sender: FDA-Public Use
  Company Number: PHHY2010CA52477

PATIENT
  Sex: Female

DRUGS (8)
  1. EXELON [Suspect]
     Indication: DEMENTIA ALZHEIMER'S TYPE
     Dosage: PATCH 10 (9.5 MG/ 24 HOURS)
     Route: 062
     Dates: start: 20100118, end: 20100719
  2. RASILEZ (ALISKIREN) [Concomitant]
     Dosage: 300 MG, QD
  3. PANTOPRAZOLE [Concomitant]
     Dosage: 40 MG, UNK
  4. NORVASC [Concomitant]
     Dosage: 50 MG, QD
  5. DIAMICRON [Concomitant]
     Dosage: 30 MG, TT
  6. SYNTHROID [Concomitant]
     Dosage: 0.05 MG, UNK
  7. LIPITOR [Concomitant]
     Dosage: 40 MG, UNK
     Route: 048
  8. PLAVIX [Concomitant]
     Dosage: 75 MG, UNK
     Route: 048

REACTIONS (4)
  - DERMATITIS ATOPIC [None]
  - DRUG ERUPTION [None]
  - RASH [None]
  - SCRATCH [None]
